FAERS Safety Report 13113407 (Version 1)
Quarter: 2017Q1

REPORT INFORMATION
  Report Type: Spontaneous
  Country: US (occurrence: US)
  Receive Date: 20170113
  Receipt Date: 20170113
  Transmission Date: 20170428
  Serious: Yes (Hospitalization)
  Sender: FDA-Public Use
  Company Number: None

PATIENT
  Age: 59 Year
  Sex: Female
  Weight: 77.6 kg

DRUGS (4)
  1. METHOTREXATE. [Suspect]
     Active Substance: METHOTREXATE
     Dates: end: 20161227
  2. CYTARABINE. [Suspect]
     Active Substance: CYTARABINE
     Dates: end: 20161223
  3. CYCLOPHOSPHAMIDE. [Suspect]
     Active Substance: CYCLOPHOSPHAMIDE
     Dates: end: 20161213
  4. MERCAPTOPURINE. [Suspect]
     Active Substance: MERCAPTOPURINE
     Dates: end: 20161226

REACTIONS (7)
  - Febrile neutropenia [None]
  - Decreased activity [None]
  - Toxic encephalopathy [None]
  - Mental status changes [None]
  - Disorientation [None]
  - Infection [None]
  - Aphasia [None]

NARRATIVE: CASE EVENT DATE: 20170103
